FAERS Safety Report 8196293-8 (Version None)
Quarter: 2012Q1

REPORT INFORMATION
  Report Type: 
  Country: None (occurrence: None)
  Receive Date: 20120306
  Receipt Date: 20120223
  Transmission Date: 20120608
  Serious: Yes (Disabling, Other)
  Sender: FDA-Public Use
  Company Number: 2011SP056398

PATIENT
  Age: 41 Year
  Sex: Female
  Weight: 64 kg

DRUGS (1)
  1. CERAZETTE (DESOGESTREL /00754001/) [Suspect]
     Indication: CONTRACEPTION
     Dosage: 75 MCG; QD; PO
     Route: 048
     Dates: start: 20110812, end: 20110901

REACTIONS (6)
  - THROAT TIGHTNESS [None]
  - ANXIETY [None]
  - MOOD SWINGS [None]
  - DYSPNOEA [None]
  - FEELING ABNORMAL [None]
  - DYSPHAGIA [None]
